FAERS Safety Report 15262808 (Version 1)
Quarter: 2018Q3

REPORT INFORMATION
  Report Type: Spontaneous
  Country: US (occurrence: US)
  Receive Date: 20180720
  Receipt Date: 20180720
  Transmission Date: 20181010
  Serious: Yes (Hospitalization)
  Sender: FDA-Public Use
  Company Number: None

PATIENT
  Age: 59 Year
  Sex: Male
  Weight: 131.6 kg

DRUGS (1)
  1. RIVAROXABAN [Suspect]
     Active Substance: RIVAROXABAN
     Indication: ATRIAL FIBRILLATION
     Route: 048
     Dates: start: 20180621, end: 20180626

REACTIONS (4)
  - Liver injury [None]
  - Cardiac failure congestive [None]
  - Tachycardia induced cardiomyopathy [None]
  - Insurance issue [None]

NARRATIVE: CASE EVENT DATE: 20180623
